FAERS Safety Report 20463259 (Version 5)
Quarter: 2022Q2

REPORT INFORMATION
  Report Type: Report from Study
  Country: CA (occurrence: CA)
  Receive Date: 20220211
  Receipt Date: 20220627
  Transmission Date: 20220720
  Serious: Yes (Other)
  Sender: FDA-Public Use
  Company Number: CA-BAUSCH-BL-2021-010901

PATIENT

DRUGS (19)
  1. CONTRAVE [Suspect]
     Active Substance: BUPROPION HYDROCHLORIDE\NALTREXONE HYDROCHLORIDE
     Indication: Weight control
     Dosage: 90 MG/8 MG (1 DOSAGE FORMS,1 IN 1 D)
     Route: 048
     Dates: start: 20210218, end: 20210307
  2. CONTRAVE [Suspect]
     Active Substance: BUPROPION HYDROCHLORIDE\NALTREXONE HYDROCHLORIDE
     Dosage: 90 MG/8 MG (1 DOSAGE FORMS,1 IN 12 HR)
     Route: 048
     Dates: start: 20210308, end: 20210308
  3. CONTRAVE [Suspect]
     Active Substance: BUPROPION HYDROCHLORIDE\NALTREXONE HYDROCHLORIDE
     Dosage: 90 MG/8 MG (1 DOSAGE FORMS,1 IN 1 D)
     Route: 048
     Dates: start: 20210309, end: 20210315
  4. CONTRAVE [Suspect]
     Active Substance: BUPROPION HYDROCHLORIDE\NALTREXONE HYDROCHLORIDE
     Dosage: 90 MG/8 MG (1 DOSAGE FORMS,1 IN 12 HR)
     Route: 048
     Dates: start: 20210316, end: 20210426
  5. CONTRAVE [Suspect]
     Active Substance: BUPROPION HYDROCHLORIDE\NALTREXONE HYDROCHLORIDE
     Dosage: 90 MG/8 MG, STOPPED ON APPROXIMATELY 02/MAY/2021 (1 DOSAGE FORMS,1 IN 1 D)
     Route: 048
     Dates: start: 20210427, end: 20210502
  6. CONTRAVE [Suspect]
     Active Substance: BUPROPION HYDROCHLORIDE\NALTREXONE HYDROCHLORIDE
     Dosage: 90 MG/8 MG, STARTED ON APPROXIMATELY 03/MAY/2021 (1 DOSAGE FORMS, 1 IN 12 HR)
     Route: 048
     Dates: start: 20210503, end: 20210701
  7. CONTRAVE [Suspect]
     Active Substance: BUPROPION HYDROCHLORIDE\NALTREXONE HYDROCHLORIDE
     Dosage: 90/8 MILLIGRAM, 02/JUL/2021 APPROXIMATELY (1 IN 12 HR)
     Route: 048
     Dates: start: 20210702, end: 20210826
  8. CONTRAVE [Suspect]
     Active Substance: BUPROPION HYDROCHLORIDE\NALTREXONE HYDROCHLORIDE
     Dosage: 90/8MG, 2 TABS BID APPROX 27/AUG/2021
     Route: 048
     Dates: start: 20210827
  9. SUCRALFATE [Interacting]
     Active Substance: SUCRALFATE
     Indication: Gastrooesophageal reflux disease
     Dosage: 2 GM (1 GM,1 IN 12 HR)
     Route: 048
     Dates: start: 20210419, end: 20210503
  10. SENNA LEAF [Suspect]
     Active Substance: SENNA LEAF
     Indication: Constipation
     Dosage: EVERY OTHER NIGHT
     Route: 048
     Dates: start: 202106
  11. COVID-19 VACCINE NOS [Suspect]
     Active Substance: COVID-19 VACCINE NOS
     Indication: COVID-19 prophylaxis
     Dosage: UNK
     Route: 065
  12. PANTOPRAZOLE [Concomitant]
     Active Substance: PANTOPRAZOLE
     Indication: Gastrooesophageal reflux disease
     Dosage: 80 MG (40 MG, 1 IN 12 HR)
     Route: 048
     Dates: start: 20210509
  13. PANTOPRAZOLE [Concomitant]
     Active Substance: PANTOPRAZOLE
     Dosage: 160 MG (80 MG, 1 IN 12 HR)
     Route: 048
     Dates: start: 20210510
  14. METOCLOPRAMIDE [Concomitant]
     Active Substance: METOCLOPRAMIDE
     Indication: Gastrooesophageal reflux disease
     Dosage: PRN (20 MG)
     Route: 048
  15. VITAMIN D NOS [Concomitant]
     Active Substance: VITAMIN D NOS
     Indication: Routine health maintenance
     Dosage: DAILY (1 IN 1 D)
     Route: 048
     Dates: start: 202106
  16. IRON [Concomitant]
     Active Substance: IRON
     Indication: Routine health maintenance
     Dosage: DAILY (1 IN 1 D)
     Route: 048
     Dates: start: 202106
  17. LACTOBACILLUS REUTERI [Concomitant]
     Active Substance: LACTOBACILLUS REUTERI
     Indication: Gastrointestinal pain
     Dosage: DAILY (1 IN 1 D)
     Route: 048
     Dates: start: 202106
  18. LINACLOTIDE [Concomitant]
     Active Substance: LINACLOTIDE
     Indication: Inflammatory bowel disease
     Dosage: MORNING (72 MG,1 IN 24 HR)
     Route: 048
     Dates: start: 202108, end: 202112
  19. LINACLOTIDE [Concomitant]
     Active Substance: LINACLOTIDE
     Dosage: EVERY THIRD DAY (72 MG,1 IN 3 D)
     Route: 048
     Dates: start: 202112, end: 202205

REACTIONS (21)
  - Pharyngitis streptococcal [Recovering/Resolving]
  - Pneumonia [Recovering/Resolving]
  - Weight increased [Not Recovered/Not Resolved]
  - Eating disorder [Not Recovered/Not Resolved]
  - Duodenogastric reflux [Not Recovered/Not Resolved]
  - Biliary colic [Not Recovered/Not Resolved]
  - Drug interaction [Unknown]
  - Food aversion [Unknown]
  - Irritable bowel syndrome [Recovered/Resolved]
  - Malaise [Unknown]
  - Stress [Not Recovered/Not Resolved]
  - Vomiting [Not Recovered/Not Resolved]
  - Dizziness [Not Recovered/Not Resolved]
  - Headache [Not Recovered/Not Resolved]
  - Nausea [Not Recovered/Not Resolved]
  - Dehydration [Not Recovered/Not Resolved]
  - Nervousness [Unknown]
  - Anxiety [Not Recovered/Not Resolved]
  - Hernia [Not Recovered/Not Resolved]
  - Drug titration error [Unknown]
  - Product dose omission issue [Unknown]

NARRATIVE: CASE EVENT DATE: 20210101
